FAERS Safety Report 8848020 (Version 1)
Quarter: 2012Q4

REPORT INFORMATION
  Report Type: 
  Country: BR (occurrence: BR)
  Receive Date: 20121018
  Receipt Date: 20121018
  Transmission Date: 20130627
  Serious: Yes (Other)
  Sender: FDA-Public Use
  Company Number: PHHY2012BR022509

PATIENT
  Age: 76 Year
  Sex: Female
  Weight: 100 kg

DRUGS (8)
  1. SANDOSTATIN LAR [Suspect]
     Indication: ACROMEGALY
     Dosage: 40 mg per month, 2 ampoules of 20 mg every 28 days
     Route: 030
     Dates: start: 20100501
  2. HYDROCHLOROTHIAZIDE [Concomitant]
     Indication: BLOOD PRESSURE ABNORMAL
     Dosage: 1 DF, daily
     Route: 048
  3. HYDROCHLOROTHIAZIDE [Concomitant]
     Dosage: 50 mg, per day
     Route: 048
  4. METHYLDOPA [Concomitant]
     Dosage: 1 DF, daily
  5. DIPYRONE [Concomitant]
     Dosage: UNK UKN, UNK
     Dates: start: 20120809
  6. STELE [Concomitant]
     Dosage: 1 mg, UNK
     Route: 067
     Dates: start: 20120925, end: 20121010
  7. SOMATOSTATIN [Concomitant]
     Indication: ACROMEGALY
     Dosage: 1 DF, UNK
     Route: 048
  8. BERGULINA [Concomitant]

REACTIONS (9)
  - Vaginal haemorrhage [Not Recovered/Not Resolved]
  - Amenorrhoea [Unknown]
  - Muscle spasms [Not Recovered/Not Resolved]
  - Arthralgia [Unknown]
  - Gait disturbance [Not Recovered/Not Resolved]
  - Eye irritation [Unknown]
  - Ocular hyperaemia [Unknown]
  - Foreign body in eye [Unknown]
  - Headache [Unknown]
